FAERS Safety Report 6941235-3 (Version None)
Quarter: 2010Q3

REPORT INFORMATION
  Report Type: 
  Country: None (occurrence: None)
  Receive Date: 20100825
  Receipt Date: 20100712
  Transmission Date: 20110219
  Serious: No
  Sender: FDA-Public Use
  Company Number: US-BRISTOL-MYERS SQUIBB COMPANY-15188311

PATIENT
  Age: 71 Year
  Sex: Female
  Weight: 84 kg

DRUGS (12)
  1. ONGLYZA [Suspect]
  2. LOVAZA [Concomitant]
  3. VITAMIN D [Concomitant]
     Dosage: 1 DF = 50000 UNIT NOT SPECIFIED
  4. LISINOPRIL [Concomitant]
  5. FUROSEMIDE [Concomitant]
  6. KLOR-CON [Concomitant]
  7. METFORMIN HCL [Concomitant]
  8. CLONIDINE [Concomitant]
  9. VERAPAMIL [Concomitant]
  10. SYNTHROID [Concomitant]
  11. VENTOLIN [Concomitant]
     Dosage: PUFFS
  12. BUSPIRONE HCL [Concomitant]

REACTIONS (1)
  - MUSCLE SPASMS [None]
